FAERS Safety Report 11272931 (Version 6)
Quarter: 2019Q1

REPORT INFORMATION
  Report Type: Spontaneous
  Country: US (occurrence: US)
  Receive Date: 20150715
  Receipt Date: 20190114
  Transmission Date: 20190417
  Serious: No
  Sender: FDA-Public Use
  Company Number: US-PFIZER INC-2015234024

PATIENT
  Sex: Female

DRUGS (8)
  1. MORPHINE SULFATE. [Suspect]
     Active Substance: MORPHINE SULFATE
     Dosage: UNK
  2. CIPRO [Suspect]
     Active Substance: CIPROFLOXACIN HYDROCHLORIDE
     Dosage: UNK
  3. CODEINE [Suspect]
     Active Substance: CODEINE
     Dosage: UNK
  4. PENICILLIN G [Suspect]
     Active Substance: PENICILLIN G
     Dosage: UNK
  5. CELEBREX [Suspect]
     Active Substance: CELECOXIB
     Dosage: UNK
  6. PERCOCET [Suspect]
     Active Substance: ACETAMINOPHEN\OXYCODONE HYDROCHLORIDE
     Dosage: UNK
  7. VIOXX [Suspect]
     Active Substance: ROFECOXIB
     Dosage: UNK
  8. IODINE. [Suspect]
     Active Substance: IODINE
     Dosage: UNK

REACTIONS (1)
  - Drug hypersensitivity [Unknown]
